FAERS Safety Report 5079415-7 (Version None)
Quarter: 2006Q3

REPORT INFORMATION
  Report Type: 
  Country: None (occurrence: None)
  Receive Date: 20060814
  Receipt Date: 20060131
  Transmission Date: 20061208
  Serious: Yes (Other)
  Sender: FDA-Public Use
  Company Number: US-ROCHE-434734

PATIENT
  Age: 39 Year
  Sex: Female

DRUGS (7)
  1. PEGASYS [Suspect]
     Indication: HEPATITIS C
     Dosage: DOSING AMOUNT REPORTED AS '1 SHOT PER WEEK'.
     Route: 058
     Dates: start: 20050923
  2. COPEGUS [Suspect]
     Indication: HEPATITIS C
     Route: 048
     Dates: start: 20050923
  3. REMERON [Concomitant]
     Indication: DEPRESSION
     Route: 048
     Dates: start: 20040615
  4. VITAMIN [Concomitant]
     Indication: VITAMIN SUPPLEMENTATION
     Route: 048
  5. KLONOPIN [Concomitant]
     Indication: SOMNOLENCE
     Dosage: DRUG ADMINISTERED AT 0.5MG AT BEDTIME
     Route: 048
  6. LOMOTIL [Concomitant]
     Indication: IRRITABLE BOWEL SYNDROME
  7. ENSURE [Concomitant]
     Indication: IRRITABLE BOWEL SYNDROME

REACTIONS (4)
  - BLOOD TRIGLYCERIDES INCREASED [None]
  - LOSS OF CONSCIOUSNESS [None]
  - NEUTROPHIL COUNT DECREASED [None]
  - WHITE BLOOD CELL COUNT DECREASED [None]
